FAERS Safety Report 20775360 (Version 1)
Quarter: 2022Q2

REPORT INFORMATION
  Report Type: Spontaneous
  Country: DE (occurrence: DE)
  Receive Date: 20220502
  Receipt Date: 20220502
  Transmission Date: 20220721
  Serious: Yes (Hospitalization, Other)
  Sender: FDA-Public Use
  Company Number: DE-Accord-261023

PATIENT
  Age: 62 Year
  Sex: Female
  Weight: 70.1 kg

DRUGS (4)
  1. GLASDEGIB [Suspect]
     Active Substance: GLASDEGIB
     Dosage: 100 MG (PLACEBO)
     Route: 048
     Dates: start: 20220120, end: 20220308
  2. GEMTUZUMAB OZOGAMICIN [Suspect]
     Active Substance: GEMTUZUMAB OZOGAMICIN
     Dosage: 5 MG
     Route: 042
     Dates: start: 20211215, end: 20211215
  3. CYTARABINE [Suspect]
     Active Substance: CYTARABINE
     Dosage: 1000 MG/M2 (REGIMEN 1)
     Route: 042
     Dates: start: 20211215, end: 20220225
  4. DAUNORUBICIN [Concomitant]
     Active Substance: DAUNORUBICIN
     Dosage: UNK
     Dates: start: 20211215, end: 20211217

REACTIONS (3)
  - Febrile neutropenia [Recovered/Resolved]
  - White blood cell count decreased [Unknown]
  - Platelet count decreased [Unknown]

NARRATIVE: CASE EVENT DATE: 20220307
